FAERS Safety Report 5456898-1 (Version None)
Quarter: 2007Q3

REPORT INFORMATION
  Report Type: 
  Country: None (occurrence: None)
  Receive Date: 20070918
  Receipt Date: 20070911
  Transmission Date: 20080115
  Serious: Yes (Other)
  Sender: FDA-Public Use
  Company Number: US-PFIZER INC-2003038302

PATIENT
  Sex: Female
  Weight: 88.5 kg

DRUGS (9)
  1. NEURONTIN [Suspect]
     Indication: CONVULSION
  2. LIPITOR [Suspect]
     Indication: BLOOD CHOLESTEROL INCREASED
     Dosage: DAILY DOSE:20MG
     Route: 048
  3. ZYRTEC [Suspect]
     Indication: MULTIPLE ALLERGIES
  4. TEGRETOL [Concomitant]
  5. MIDRIN [Concomitant]
  6. SYNTHROID [Concomitant]
  7. ROBAXIN [Concomitant]
  8. BENADRYL [Concomitant]
  9. ALLEGRA [Concomitant]

REACTIONS (11)
  - ALOPECIA [None]
  - DRUG INEFFECTIVE [None]
  - FEELING ABNORMAL [None]
  - FLATULENCE [None]
  - MUSCLE SPASMS [None]
  - RASH [None]
  - SJOGREN'S SYNDROME [None]
  - SLEEP DISORDER [None]
  - SOMNOLENCE [None]
  - THYROID FUNCTION TEST ABNORMAL [None]
  - TREMOR [None]
